FAERS Safety Report 6391139-2 (Version None)
Quarter: 2009Q4

REPORT INFORMATION
  Report Type: 
  Country: None (occurrence: None)
  Receive Date: 20091007
  Receipt Date: 20090923
  Transmission Date: 20100525
  Serious: Yes (Other)
  Sender: FDA-Public Use
  Company Number: US-PFIZER INC-2009241627

PATIENT
  Age: 52 Year
  Sex: Female
  Weight: 68.027 kg

DRUGS (1)
  1. CHANTIX [Suspect]
     Dosage: 1 MG, 2X/DAY
     Route: 048
     Dates: start: 20081110, end: 20090707

REACTIONS (5)
  - ANXIETY [None]
  - DEPRESSION [None]
  - HOMICIDAL IDEATION [None]
  - PERSONALITY CHANGE [None]
  - SUICIDAL IDEATION [None]
